FAERS Safety Report 24437060 (Version 1)
Quarter: 2024Q4

REPORT INFORMATION
  Report Type: Report from Study
  Country: GB (occurrence: GB)
  Receive Date: 20241015
  Receipt Date: 20241015
  Transmission Date: 20250115
  Serious: Yes (Hospitalization, Other)
  Sender: MYLAN
  Company Number: GB-MYLANLABS-2024M1091872

PATIENT
  Age: 12 Year

DRUGS (1)
  1. ZOLEDRONIC ACID [Suspect]
     Active Substance: ZOLEDRONIC ACID
     Indication: Duchenne muscular dystrophy
     Dosage: 0.1 MILLIGRAM/KILOGRAM, DIVIDED INTO TWO OR THREE DOSES (INFUSION)
     Route: 042

REACTIONS (3)
  - Acute phase reaction [Unknown]
  - Vomiting [Unknown]
  - Off label use [Unknown]
